FAERS Safety Report 24426625 (Version 2)
Quarter: 2024Q4

REPORT INFORMATION
  Report Type: Report from Study
  Country: CA (occurrence: CA)
  Receive Date: 20241011
  Receipt Date: 20241107
  Transmission Date: 20250114
  Serious: Yes (Death, Other)
  Sender: TAKEDA
  Company Number: CA-TAKEDA-2024TUS101111

PATIENT
  Age: 81 Year
  Sex: Female

DRUGS (1)
  1. VEDOLIZUMAB [Suspect]
     Active Substance: VEDOLIZUMAB
     Indication: Crohn^s disease
     Dosage: 300 MILLIGRAM
     Route: 042
     Dates: start: 20201224

REACTIONS (1)
  - Death [Fatal]

NARRATIVE: CASE EVENT DATE: 20240917
